FAERS Safety Report 13654054 (Version 2)
Quarter: 2017Q2

REPORT INFORMATION
  Report Type: Spontaneous
  Country: EG (occurrence: EG)
  Receive Date: 20170614
  Receipt Date: 20170620
  Transmission Date: 20170830
  Serious: Yes (Hospitalization)
  Sender: FDA-Public Use
  Company Number: PHHY2017EG085601

PATIENT
  Age: 9 Year
  Sex: Male

DRUGS (3)
  1. CURAM [Suspect]
     Active Substance: AMOXICILLIN\CLAVULANATE POTASSIUM
     Indication: NASAL CONGESTION
  2. CURAM [Suspect]
     Active Substance: AMOXICILLIN\CLAVULANATE POTASSIUM
     Indication: VIRAL UPPER RESPIRATORY TRACT INFECTION
     Dosage: 642 MG IN 5 ML, Q8H
     Route: 048
  3. CURAM [Suspect]
     Active Substance: AMOXICILLIN\CLAVULANATE POTASSIUM
     Indication: PYREXIA

REACTIONS (5)
  - Cough [Recovered/Resolved]
  - Product dosage form issue [Unknown]
  - Vomiting [Recovered/Resolved]
  - Product odour abnormal [Unknown]
  - Dyspnoea [Recovered/Resolved]

NARRATIVE: CASE EVENT DATE: 20170525
